FAERS Safety Report 12992303 (Version 2)
Quarter: 2017Q1

REPORT INFORMATION
  Report Type: Spontaneous
  Country: CA (occurrence: CA)
  Receive Date: 20161201
  Receipt Date: 20170203
  Transmission Date: 20170428
  Serious: Yes (Life-Threatening, Other)
  Sender: FDA-Public Use
  Company Number: CA-STRIDES ARCOLAB LIMITED-2016SP018177

PATIENT

DRUGS (3)
  1. PARACETAMOL [Suspect]
     Active Substance: ACETAMINOPHEN
     Indication: PRODUCT USED FOR UNKNOWN INDICATION
     Dosage: UNK
     Route: 048
  2. IBUPROFEN. [Suspect]
     Active Substance: IBUPROFEN
     Indication: HEADACHE
     Dosage: UNK
  3. CELECOXIB. [Suspect]
     Active Substance: CELECOXIB
     Indication: PRODUCT USED FOR UNKNOWN INDICATION
     Dosage: UNK

REACTIONS (11)
  - Generalised tonic-clonic seizure [Unknown]
  - Cardiac arrest [Unknown]
  - Acute coronary syndrome [Recovered/Resolved]
  - Asthma [Unknown]
  - Contraindicated product administered [Unknown]
  - Sinus bradycardia [Unknown]
  - Drug hypersensitivity [Unknown]
  - Kounis syndrome [Unknown]
  - Chest discomfort [Recovered/Resolved]
  - Loss of consciousness [Unknown]
  - Dyspnoea [Unknown]
